FAERS Safety Report 12262779 (Version 2)
Quarter: 2017Q1

REPORT INFORMATION
  Report Type: Spontaneous
  Country: US (occurrence: US)
  Receive Date: 20160413
  Receipt Date: 20170302
  Transmission Date: 20170428
  Serious: Yes (Hospitalization)
  Sender: FDA-Public Use
  Company Number: US-ASTRAZENECA-2016SE36458

PATIENT
  Age: 24523 Day
  Sex: Male

DRUGS (1)
  1. BRILINTA [Suspect]
     Active Substance: TICAGRELOR
     Indication: ACUTE CORONARY SYNDROME
     Route: 048

REACTIONS (7)
  - Hypoaesthesia [Unknown]
  - Anxiety [Unknown]
  - Haemorrhage [Unknown]
  - Pain [Unknown]
  - Paraesthesia [Unknown]
  - Aneurysm [Unknown]
  - Eye pain [Unknown]

NARRATIVE: CASE EVENT DATE: 20160309
